FAERS Safety Report 15963223 (Version 2)
Quarter: 2019Q1

REPORT INFORMATION
  Report Type: Spontaneous
  Country: US (occurrence: US)
  Receive Date: 20190214
  Receipt Date: 20190228
  Transmission Date: 20190417
  Serious: Yes (Other)
  Sender: FDA-Public Use
  Company Number: US-AKORN PHARMACEUTICALS-2019AKN00217

PATIENT
  Age: 15 Year
  Sex: Male
  Weight: 86.1 kg

DRUGS (3)
  1. SULFAMETHOXAZOLE-TRIMETHOPRIM [Concomitant]
     Active Substance: SULFAMETHOXAZOLE\TRIMETHOPRIM
     Dosage: 1 DOSAGE UNITS, 2X/DAY
     Route: 048
  2. MYORISAN [Suspect]
     Active Substance: ISOTRETINOIN
     Indication: ACNE CYSTIC
     Dosage: 40 MG, 2X/DAY
     Route: 048
     Dates: end: 20190131
  3. MYORISAN [Suspect]
     Active Substance: ISOTRETINOIN
     Indication: ACNE
     Dosage: 40 MG, 2X/DAY
     Route: 048
     Dates: start: 20190201

REACTIONS (13)
  - Depression [Recovered/Resolved]
  - Suicide threat [Recovered/Resolved]
  - Mood altered [Recovered/Resolved]
  - High density lipoprotein increased [Unknown]
  - Anger [Recovered/Resolved]
  - Blood triglycerides increased [Unknown]
  - Lip dry [Unknown]
  - Cheilitis [Recovering/Resolving]
  - Suicidal ideation [Recovered/Resolved]
  - Blood cholesterol increased [Unknown]
  - Epistaxis [Recovering/Resolving]
  - Dermatitis [Recovering/Resolving]
  - Crying [Recovered/Resolved]

NARRATIVE: CASE EVENT DATE: 2019
